FAERS Safety Report 6288488-5 (Version None)
Quarter: 2009Q3

REPORT INFORMATION
  Report Type: 
  Country: None (occurrence: None)
  Receive Date: 20090729
  Receipt Date: 20090717
  Transmission Date: 20100115
  Serious: Yes (Other)
  Sender: FDA-Public Use
  Company Number: SK-WATSON-2009-05615

PATIENT
  Age: 46 Year
  Sex: Male

DRUGS (2)
  1. PREDNISONE (WATSON LABORATORIES) [Suspect]
     Indication: CROHN'S DISEASE
     Dosage: 60 MG, DAILY
     Route: 048
  2. PREDNISONE (WATSON LABORATORIES) [Suspect]
     Indication: PANCREATITIS

REACTIONS (1)
  - CHORIORETINOPATHY [None]
